FAERS Safety Report 7128648-4 (Version None)
Quarter: 2010Q4

REPORT INFORMATION
  Report Type: 
  Country: None (occurrence: None)
  Receive Date: 20101130
  Receipt Date: 20101124
  Transmission Date: 20110411
  Serious: Yes (Death, Hospitalization)
  Sender: FDA-Public Use
  Company Number: JP-ROCHE-706941

PATIENT
  Sex: Male
  Weight: 59.2 kg

DRUGS (6)
  1. CAPECITABINE [Suspect]
     Indication: GASTRIC CANCER
     Dosage: TAKEN ON DAYS 1-14 EVERY 21 DAYS
     Route: 048
     Dates: start: 20100413, end: 20100426
  2. AXITINIB [Suspect]
     Indication: GASTRIC CANCER
     Route: 048
     Dates: start: 20100410, end: 20100507
  3. CISPLATIN [Suspect]
     Indication: GASTRIC CANCER
     Dosage: TAKEN ON DAY 1 OF 21 DAY CYCLE; FORM: SOLUTION FOR INFUSION
     Route: 042
     Dates: start: 20100413, end: 20100413
  4. THYRADIN-S [Concomitant]
     Route: 048
     Dates: start: 20100419
  5. TAKEPRON [Concomitant]
     Indication: GASTRIC ULCER
     Route: 048
  6. BISACODYL [Concomitant]
     Indication: CONSTIPATION
     Route: 054

REACTIONS (2)
  - GASTROINTESTINAL PERFORATION [None]
  - MALIGNANT NEOPLASM PROGRESSION [None]
